FAERS Safety Report 15076388 (Version 2)
Quarter: 2018Q3

REPORT INFORMATION
  Report Type: Report from Study
  Country: BR (occurrence: BR)
  Receive Date: 20180627
  Receipt Date: 20180827
  Transmission Date: 20181010
  Serious: Yes (Hospitalization, Other)
  Sender: FDA-Public Use
  Company Number: BR-JNJFOC-20180624610

PATIENT
  Sex: Female

DRUGS (4)
  1. REMICADE [Suspect]
     Active Substance: INFLIXIMAB
     Indication: CROHN^S DISEASE
     Route: 042
     Dates: start: 2013, end: 2015
  2. PREDNISONE. [Concomitant]
     Active Substance: PREDNISONE
     Route: 065
  3. CALCIUM [Concomitant]
     Active Substance: CALCIUM
     Route: 065
  4. IRON [Concomitant]
     Active Substance: IRON
     Route: 065

REACTIONS (3)
  - Drug administration error [Unknown]
  - Pneumonia [Recovered/Resolved]
  - Tuberculosis [Recovered/Resolved]

NARRATIVE: CASE EVENT DATE: 2016
